FAERS Safety Report 6862396-0 (Version None)
Quarter: 2010Q2

REPORT INFORMATION
  Report Type: 
  Country: None (occurrence: None)
  Receive Date: 20100527
  Receipt Date: 20100317
  Transmission Date: 20101027
  Serious: Yes (Other)
  Sender: FDA-Public Use
  Company Number: 2010034479

PATIENT
  Age: 76 Year
  Sex: Female

DRUGS (3)
  1. VERAPAMIL HCL [Suspect]
  2. GLEEVEC [Concomitant]
  3. WARFARIN SODIUM [Concomitant]

REACTIONS (1)
  - DYSPNOEA [None]
